FAERS Safety Report 11057940 (Version 1)
Quarter: 2015Q2

REPORT INFORMATION
  Report Type: Spontaneous
  Country: None (occurrence: None)
  Receive Date: 20150415
  Receipt Date: 20150415
  Transmission Date: 20150821
  Serious: Yes (Hospitalization)
  Sender: FDA-Public Use
  Company Number: GTI003106

PATIENT
  Age: 64 Year
  Sex: Male

DRUGS (4)
  1. DIOVAN [Concomitant]
     Active Substance: VALSARTAN
  2. GAMUNEX-C [Suspect]
     Active Substance: HUMAN IMMUNOGLOBULIN G
     Indication: CHRONIC INFLAMMATORY DEMYELINATING POLYRADICULONEUROPATHY
     Route: 042
     Dates: end: 20150306
  3. AMLODIPINE [Concomitant]
     Active Substance: AMLODIPINE BESYLATE
  4. SULFA /00076401/ [Concomitant]
     Active Substance: SULFADIAZINE

REACTIONS (11)
  - Nausea [None]
  - Decreased appetite [None]
  - Hyperhidrosis [None]
  - Blood magnesium decreased [None]
  - Cardiac ablation [None]
  - Circulatory collapse [None]
  - Heart rate increased [None]
  - Dyspnoea [None]
  - Rash [None]
  - Blood potassium decreased [None]
  - Blood pressure increased [None]

NARRATIVE: CASE EVENT DATE: 20150307
